FAERS Safety Report 9325525 (Version 1)
Quarter: 2013Q3

REPORT INFORMATION
  Report Type: Spontaneous
  Country: US (occurrence: None)
  Receive Date: 20130531
  Receipt Date: 20130531
  Transmission Date: 20140515
  Serious: Yes (Hospitalization)
  Sender: FDA-Public Use
  Company Number: None

PATIENT
  Age: 70 Year
  Sex: Female
  Weight: 88 kg

DRUGS (12)
  1. PASIREOTIDE [Suspect]
     Indication: FOLLICULAR THYROID CANCER
     Dosage: 50MG; EVERY 28 DAYS; IM
     Route: 030
  2. PASIREOTIDE [Suspect]
     Indication: METASTASIS
     Dosage: 50MG; EVERY 28 DAYS; IM
     Route: 030
  3. EVEROLIMUS [Suspect]
     Route: 048
  4. VERAPAMIL [Concomitant]
  5. DIOVAN [Concomitant]
  6. POTASSIUM CHLORIDE [Concomitant]
  7. METFORMIN [Concomitant]
  8. LEVOXYL [Concomitant]
  9. HYDRALAZINE [Concomitant]
  10. LASIX [Concomitant]
  11. ADVAIR DISKUS [Concomitant]
  12. ATROVENT [Concomitant]

REACTIONS (4)
  - Therapy cessation [None]
  - Hyperglycaemia [None]
  - Diabetic ketoacidosis [None]
  - Anaemia [None]
